FAERS Safety Report 22362775 (Version 2)
Quarter: 2023Q2

REPORT INFORMATION
  Report Type: Spontaneous
  Country: US (occurrence: US)
  Receive Date: 20230524
  Receipt Date: 20230626
  Transmission Date: 20230721
  Serious: No
  Sender: FDA-Public Use
  Company Number: US-JNJFOC-20230533233

PATIENT
  Age: 23 Year
  Sex: Male

DRUGS (62)
  1. ZYRTEC [Suspect]
     Active Substance: CETIRIZINE HYDROCHLORIDE
     Indication: Multiple allergies
     Route: 048
     Dates: start: 20230509
  2. ZYRTEC [Suspect]
     Active Substance: CETIRIZINE HYDROCHLORIDE
     Indication: Upper-airway cough syndrome
  3. ZYRTEC [Suspect]
     Active Substance: CETIRIZINE HYDROCHLORIDE
     Indication: Rash
  4. VITAMIN C [Concomitant]
     Active Substance: ASCORBIC ACID
     Indication: Immune enhancement therapy
     Dosage: 1X DAILY
     Route: 065
  5. TACROLIMUS [Concomitant]
     Active Substance: TACROLIMUS
     Indication: Eczema
     Route: 065
  6. CARAFATE [Concomitant]
     Active Substance: SUCRALFATE
     Indication: Prophylaxis against gastrointestinal ulcer
     Dosage: AS NEEDED (TAKEN WITH CELEBREX FOR PAIN)
     Route: 065
  7. GLUTAMINE [LEVOGLUTAMIDE] [Concomitant]
     Indication: Dyspepsia
     Dosage: 1X DAILY (INTERMITTENT)
  8. PROPECIA [Concomitant]
     Active Substance: FINASTERIDE
     Indication: Androgenetic alopecia
     Dosage: 0.5 TABLET X DAILY
     Route: 065
  9. ALAWAY [Concomitant]
     Active Substance: KETOTIFEN FUMARATE
     Indication: Hypersensitivity
     Route: 065
  10. ALBUTEROL [Concomitant]
     Active Substance: ALBUTEROL
     Indication: Asthma
     Dosage: 90 MCG . 2 INHALATIONS
     Route: 065
  11. ALBUTEROL [Concomitant]
     Active Substance: ALBUTEROL
     Indication: Suspected COVID-19
  12. CELEBREX [Concomitant]
     Active Substance: CELECOXIB
     Indication: Pain
     Dosage: AS NEEDED TAKEN WITH CARAFAE
     Route: 065
  13. CELEBREX [Concomitant]
     Active Substance: CELECOXIB
     Indication: Headache
  14. CELEBREX [Concomitant]
     Active Substance: CELECOXIB
     Indication: Arthritis
  15. RESTASIS [Concomitant]
     Active Substance: CYCLOSPORINE
     Indication: Meibomian gland dysfunction
     Dosage: 1 DROP EACH EYE 2 TIMES A DAY
     Route: 065
  16. RESTASIS [Concomitant]
     Active Substance: CYCLOSPORINE
     Indication: Dry eye
  17. COLLAGEN [Concomitant]
     Active Substance: COLLAGEN
     Indication: Dyspepsia
     Dosage: 1X DAILY (INTERMITTENT)
     Route: 065
  18. FISH OIL [Concomitant]
     Active Substance: FISH OIL
     Indication: Meibomian gland dysfunction
     Route: 065
  19. FISH OIL [Concomitant]
     Active Substance: FISH OIL
     Indication: Dry eye
  20. FLONASE [Concomitant]
     Active Substance: FLUTICASONE PROPIONATE
     Indication: Hypersensitivity
     Dosage: 1-2 (50MCG/ACTUATION) SPRAYS IN EACH NOSTRIL AT BEDTIME
     Route: 065
  21. FLONASE [Concomitant]
     Active Substance: FLUTICASONE PROPIONATE
     Indication: Upper-airway cough syndrome
  22. FLONASE [Concomitant]
     Active Substance: FLUTICASONE PROPIONATE
     Indication: Gastrooesophageal reflux disease
  23. TENEX [Concomitant]
     Active Substance: GUANFACINE HYDROCHLORIDE
     Indication: Attention deficit hyperactivity disorder
     Route: 065
  24. TENEX [Concomitant]
     Active Substance: GUANFACINE HYDROCHLORIDE
     Indication: Autism spectrum disorder
  25. LUTEIN BLUE [Concomitant]
     Indication: Eye disorder
     Route: 065
  26. MAGNESIUM [Concomitant]
     Active Substance: MAGNESIUM
     Indication: Migraine prophylaxis
     Route: 065
  27. CONCERTA [Concomitant]
     Active Substance: METHYLPHENIDATE HYDROCHLORIDE
     Indication: Attention deficit hyperactivity disorder
     Route: 065
  28. CONCERTA [Concomitant]
     Active Substance: METHYLPHENIDATE HYDROCHLORIDE
     Indication: Anxiety
  29. CONCERTA [Concomitant]
     Active Substance: METHYLPHENIDATE HYDROCHLORIDE
     Indication: Autism spectrum disorder
  30. MINOXIDIL [Concomitant]
     Active Substance: MINOXIDIL
     Indication: Androgenetic alopecia
     Dosage: 2X A DAY
     Route: 061
  31. MIRALAX [Concomitant]
     Active Substance: POLYETHYLENE GLYCOL 3350
     Indication: Constipation
     Dosage: 2 CAPFUL ONCE DAILY
     Route: 065
  32. MIRALAX [Concomitant]
     Active Substance: POLYETHYLENE GLYCOL 3350
     Indication: Inflammatory bowel disease
  33. NASONEX [Concomitant]
     Active Substance: MOMETASONE FUROATE
     Indication: Hypersensitivity
     Dosage: 2 SPRAYS (50MCG/ACTUATION) X ONCE DAILY AT BEDTIME
     Route: 065
  34. NASONEX [Concomitant]
     Active Substance: MOMETASONE FUROATE
     Indication: Upper-airway cough syndrome
  35. NASONEX [Concomitant]
     Active Substance: MOMETASONE FUROATE
     Indication: Gastrooesophageal reflux disease
  36. PROBIOTICS NOS [Concomitant]
     Active Substance: PROBIOTICS NOS
     Indication: Dyspepsia
     Route: 065
  37. HERBALS\PLANTAGO OVATA SEED COAT [Concomitant]
     Active Substance: HERBALS\PLANTAGO OVATA SEED COAT
     Indication: Constipation
     Dosage: 1-2 TSP 1X DAILY
     Route: 065
  38. QUERCETIN [Concomitant]
     Active Substance: QUERCETIN
     Indication: Product used for unknown indication
     Route: 065
  39. UBRELVY [Concomitant]
     Active Substance: UBROGEPANT
     Indication: Migraine
     Dosage: AS NEEDED
     Route: 065
  40. VEDOLIZUMAB [Concomitant]
     Active Substance: VEDOLIZUMAB
     Indication: Crohn^s disease
     Route: 065
  41. VITAMIN B2 [Concomitant]
     Active Substance: RIBOFLAVIN
     Indication: Migraine prophylaxis
     Route: 065
  42. VITAMIN D3 [Concomitant]
     Active Substance: CHOLECALCIFEROL
     Indication: Vitamin D deficiency
     Route: 065
  43. ACETAMINOPHEN [Concomitant]
     Active Substance: ACETAMINOPHEN
     Indication: Pain
     Dosage: 1-2 EVERY 8 HOURS AS NEEDED
     Route: 065
  44. ACETAMINOPHEN [Concomitant]
     Active Substance: ACETAMINOPHEN
     Indication: Headache
  45. ACETAMINOPHEN [Concomitant]
     Active Substance: ACETAMINOPHEN
     Indication: Arthritis
  46. ALPRAZOLAM [Concomitant]
     Active Substance: ALPRAZOLAM
     Indication: Anxiety
     Route: 065
  47. CELEXA [Concomitant]
     Active Substance: CITALOPRAM HYDROBROMIDE
     Indication: Attention deficit hyperactivity disorder
     Route: 065
  48. CELEXA [Concomitant]
     Active Substance: CITALOPRAM HYDROBROMIDE
     Indication: Autism spectrum disorder
  49. CELEXA [Concomitant]
     Active Substance: CITALOPRAM HYDROBROMIDE
     Indication: Anxiety
  50. CELEXA [Concomitant]
     Active Substance: CITALOPRAM HYDROBROMIDE
     Indication: Depression
  51. GUAIFENESIN [Concomitant]
     Active Substance: GUAIFENESIN
     Indication: Upper respiratory tract infection
     Route: 065
  52. GUAIFENESIN [Concomitant]
     Active Substance: GUAIFENESIN
     Indication: Nasal congestion
  53. HYDROCORTISONE [Concomitant]
     Active Substance: HYDROCORTISONE
     Indication: Eczema
     Route: 065
  54. KETOCONAZOLE [Concomitant]
     Active Substance: KETOCONAZOLE
     Indication: Androgenetic alopecia
     Dosage: 2% 3-4 X A WEEK AS NEEDED
     Route: 065
  55. KETOCONAZOLE [Concomitant]
     Active Substance: KETOCONAZOLE
     Indication: Dandruff
  56. KETOCONAZOLE [Concomitant]
     Active Substance: KETOCONAZOLE
     Indication: Dermatitis
  57. LORATADINE [Concomitant]
     Active Substance: LORATADINE
     Indication: Perennial allergy
     Route: 065
  58. LORATADINE [Concomitant]
     Active Substance: LORATADINE
     Indication: Rash
  59. LORATADINE [Concomitant]
     Active Substance: LORATADINE
     Indication: Inner ear disorder
  60. TRETINOIN [Concomitant]
     Active Substance: TRETINOIN
     Indication: Acne
     Dosage: APPLY TO FACE AS NEEDED
     Route: 065
  61. TRETINOIN [Concomitant]
     Active Substance: TRETINOIN
     Indication: Skin irritation
  62. TRETINOIN [Concomitant]
     Active Substance: TRETINOIN
     Indication: Therapeutic skin care topical

REACTIONS (8)
  - Anxiety [Recovered/Resolved]
  - Dissociative disorder [Recovered/Resolved]
  - Photopsia [Unknown]
  - Visual impairment [Unknown]
  - Palpitations [Unknown]
  - Initial insomnia [Recovered/Resolved]
  - Somnolence [Unknown]
  - Product use in unapproved indication [Unknown]

NARRATIVE: CASE EVENT DATE: 20230509
